FAERS Safety Report 15623397 (Version 1)
Quarter: 2018Q4

REPORT INFORMATION
  Report Type: Spontaneous
  Country: US (occurrence: US)
  Receive Date: 20181115
  Receipt Date: 20181115
  Transmission Date: 20190205
  Serious: Yes (Other)
  Sender: FDA-Public Use
  Company Number: US-ELI_LILLY_AND_COMPANY-US201811002420

PATIENT
  Sex: Female

DRUGS (2)
  1. HUMALOG [Suspect]
     Active Substance: INSULIN LISPRO
     Indication: PRODUCT USED FOR UNKNOWN INDICATION
     Dosage: UNK, UNKNOWN
     Dates: start: 201808
  2. HUMALOG [Suspect]
     Active Substance: INSULIN LISPRO
     Dosage: UNK, UNKNOWN

REACTIONS (7)
  - Diabetic ketoacidosis [Recovered/Resolved]
  - Renal disorder [Not Recovered/Not Resolved]
  - Blood glucose increased [Unknown]
  - Thyroid disorder [Not Recovered/Not Resolved]
  - Intentional product misuse [Unknown]
  - Vision blurred [Unknown]
  - Blood glucose increased [Recovered/Resolved]
